FAERS Safety Report 8298618-1 (Version None)
Quarter: 2012Q2

REPORT INFORMATION
  Report Type: 
  Country: None (occurrence: None)
  Receive Date: 20120419
  Receipt Date: 20120326
  Transmission Date: 20120825
  Serious: No
  Sender: FDA-Public Use
  Company Number: US-BAYER-2012-029746

PATIENT
  Age: 26 Year
  Sex: Female

DRUGS (2)
  1. MIRENA [Suspect]
     Indication: CONTRACEPTION
     Dosage: 52 MG, ONCE
     Route: 015
     Dates: start: 20120320
  2. MIRENA [Suspect]
     Dosage: 52 MG, ONCE
     Route: 015
     Dates: start: 20120320

REACTIONS (2)
  - DYSMENORRHOEA [None]
  - DEVICE EXPULSION [None]
